FAERS Safety Report 5469488-1 (Version None)
Quarter: 2007Q3

REPORT INFORMATION
  Report Type: 
  Country: None (occurrence: None)
  Receive Date: 20070927
  Receipt Date: 20070921
  Transmission Date: 20080115
  Serious: Yes (Death, Life-Threatening, Hospitalization, Disabling)
  Sender: FDA-Public Use
  Company Number: A0665369A

PATIENT
  Age: 25 Year
  Sex: Male

DRUGS (5)
  1. LAMICTAL [Suspect]
     Dosage: 200MG TWICE PER DAY
     Route: 048
     Dates: start: 20070302, end: 20070403
  2. ZOFRAN [Suspect]
     Indication: DRUG USE FOR UNKNOWN INDICATION
     Route: 065
  3. DILANTIN [Concomitant]
     Dates: end: 20070403
  4. KEPPRA [Concomitant]
     Dosage: 2000MG TWICE PER DAY
     Dates: end: 20070403
  5. LYRICA [Concomitant]
     Dosage: 150MG TWICE PER DAY
     Dates: end: 20070403

REACTIONS (1)
  - DRUG TOXICITY [None]
